FAERS Safety Report 24969843 (Version 8)
Quarter: 2025Q3

REPORT INFORMATION
  Report Type: Spontaneous
  Country: EU (occurrence: EU)
  Receive Date: 20250214
  Receipt Date: 20250913
  Transmission Date: 20251021
  Serious: Yes (Death, Other)
  Sender: ABBVIE
  Company Number: None

PATIENT
  Age: 17 Year
  Sex: Male

DRUGS (3)
  1. ADALIMUMAB [Suspect]
     Active Substance: ADALIMUMAB
     Indication: Acne conglobata
     Route: 058
     Dates: start: 20240828, end: 20241106
  2. ADALIMUMAB [Suspect]
     Active Substance: ADALIMUMAB
     Indication: Acne
  3. ISOTRETINOIN [Suspect]
     Active Substance: ISOTRETINOIN
     Indication: Acne conglobata
     Route: 048
     Dates: start: 202403, end: 202409

REACTIONS (2)
  - Completed suicide [Fatal]
  - Off label use [Unknown]

NARRATIVE: CASE EVENT DATE: 20241120
